FAERS Safety Report 6848914-7 (Version None)
Quarter: 2010Q3

REPORT INFORMATION
  Report Type: 
  Country: None (occurrence: None)
  Receive Date: 20100716
  Receipt Date: 20071123
  Transmission Date: 20110219
  Serious: Yes (Other)
  Sender: FDA-Public Use
  Company Number: US-PFIZER INC-2007080701

PATIENT
  Sex: Female

DRUGS (3)
  1. CHANTIX [Suspect]
     Indication: SMOKING CESSATION THERAPY
     Dates: start: 20070801
  2. ZOLOFT [Suspect]
  3. KLONOPIN [Suspect]

REACTIONS (5)
  - ABNORMAL DREAMS [None]
  - AGGRESSION [None]
  - POOR QUALITY SLEEP [None]
  - SLEEP TALKING [None]
  - TONGUE DISORDER [None]
